FAERS Safety Report 13250928 (Version 1)
Quarter: 2017Q1

REPORT INFORMATION
  Report Type: Spontaneous
  Country: US (occurrence: US)
  Receive Date: 20170220
  Receipt Date: 20170220
  Transmission Date: 20170428
  Serious: No
  Sender: FDA-Public Use
  Company Number: US-TEVA-661094USA

PATIENT
  Age: 50 Year
  Sex: Male
  Weight: 113.5 kg

DRUGS (2)
  1. AMOXICILLIN. [Suspect]
     Active Substance: AMOXICILLIN
     Indication: SINUSITIS
  2. AMOXICILLIN. [Suspect]
     Active Substance: AMOXICILLIN
     Indication: BRONCHITIS
     Route: 065

REACTIONS (4)
  - Pruritus [Unknown]
  - Hypersensitivity [Unknown]
  - Dyspnoea [Unknown]
  - Chest discomfort [Unknown]
